FAERS Safety Report 4361433-5 (Version None)
Quarter: 2004Q2

REPORT INFORMATION
  Report Type: 
  Country: None (occurrence: None)
  Receive Date: 20040519
  Receipt Date: 20040519
  Transmission Date: 20050107
  Serious: Yes (Hospitalization)
  Sender: FDA-Public Use
  Company Number: None

PATIENT
  Age: 58 Year
  Sex: Male
  Weight: 74.9 kg

DRUGS (10)
  1. INTEGRILIN [Suspect]
     Indication: ANTIPLATELET THERAPY
     Dosage: 2 (6.8 ML BOLUSES) 12 ML/HR IV
     Route: 042
     Dates: start: 20040506, end: 20040507
  2. HEPARIN [Suspect]
     Indication: ANTICOAGULANT THERAPY
     Dosage: 3750
     Dates: start: 20040506
  3. NITROGLYCERIN [Concomitant]
  4. MIDAZOLAM HCL [Concomitant]
  5. HYDROMORPHONE HCL [Concomitant]
  6. CEFAZIDINE [Concomitant]
  7. ASPIRIN [Concomitant]
  8. ACETYLCYSTEINE [Concomitant]
  9. DIPHENHYDRAMINE HCL [Concomitant]
  10. CLOPIDOGREL BISULFATE [Concomitant]

REACTIONS (1)
  - PUNCTURE SITE REACTION [None]
